FAERS Safety Report 4367767-2 (Version None)
Quarter: 2004Q2

REPORT INFORMATION
  Report Type: 
  Country: None (occurrence: None)
  Receive Date: 20040601
  Receipt Date: 20040316
  Transmission Date: 20050107
  Serious: Yes (Hospitalization)
  Sender: FDA-Public Use
  Company Number: CA-AMGEN-US069691

PATIENT
  Sex: Male

DRUGS (3)
  1. ETANERCEPT [Suspect]
     Indication: PSORIASIS
     Route: 058
     Dates: start: 20040128, end: 20040301
  2. ETANERCEPT [Suspect]
     Route: 058
     Dates: start: 20021101, end: 20040128
  3. SYNTHROID [Concomitant]

REACTIONS (9)
  - DIALYSIS [None]
  - ERYTHEMA [None]
  - MYOSITIS [None]
  - NECROTISING FASCIITIS STREPTOCOCCAL [None]
  - PIGMENTATION DISORDER [None]
  - RENAL FAILURE [None]
  - RENAL FAILURE ACUTE [None]
  - SEPTIC SHOCK [None]
  - SKIN GRAFT [None]
